FAERS Safety Report 10399051 (Version 3)
Quarter: 2014Q3

REPORT INFORMATION
  Report Type: Spontaneous
  Country: RU (occurrence: RU)
  Receive Date: 20140821
  Receipt Date: 20140905
  Transmission Date: 20150326
  Serious: Yes (Life-Threatening, Other)
  Sender: FDA-Public Use
  Company Number: RU-ASTRAZENECA-2014SE61454

PATIENT
  Age: 28 Year
  Sex: Female
  Weight: 57 kg

DRUGS (11)
  1. SORBIFER [Suspect]
     Active Substance: FERROUS SULFATE\FERROUS SULFATE, DRIED
     Route: 048
  2. ACTRAPID [Suspect]
     Active Substance: INSULIN HUMAN
     Dosage: 6
     Route: 058
  3. LEVEMIR [Suspect]
     Active Substance: INSULIN DETEMIR
     Dosage: 40 BID
     Route: 058
  4. BRILINTA [Suspect]
     Active Substance: TICAGRELOR
     Indication: ELECTROCARDIOGRAM ST SEGMENT ELEVATION
     Route: 048
     Dates: start: 20140630
  5. CARDIASK [Suspect]
     Active Substance: ASPIRIN
     Route: 048
  6. ENALAPRIL [Suspect]
     Active Substance: ENALAPRIL
     Route: 048
  7. BRILINTA [Suspect]
     Active Substance: TICAGRELOR
     Indication: ACUTE CORONARY SYNDROME
     Route: 048
     Dates: start: 20140630
  8. OMEZ [Suspect]
     Active Substance: OMEPRAZOLE
     Route: 048
  9. EGILOK [Suspect]
     Active Substance: METOPROLOL TARTRATE
     Route: 048
  10. ATORVASTATIN [Suspect]
     Active Substance: ATORVASTATIN
     Route: 048
  11. NOZEPAM [Suspect]
     Active Substance: OXAZEPAM
     Route: 048

REACTIONS (3)
  - Thrombosis in device [Unknown]
  - Arterial occlusive disease [Unknown]
  - Acute myocardial infarction [Unknown]

NARRATIVE: CASE EVENT DATE: 20140703
